FAERS Safety Report 8086124 (Version 7)
Quarter: 2013Q1

REPORT INFORMATION
  Report Type: Spontaneous
  Country: US (occurrence: None)
  Receive Date: 20110803
  Receipt Date: 20130201
  Transmission Date: 20140127
  Serious: Yes (Hospitalization)
  Sender: FDA-Public Use
  Company Number: CIP11001846

PATIENT
  Age: 66 Year
  Sex: Male

DRUGS (17)
  1. ACTONEL [Suspect]
     Indication: OSTEOPENIA
     Route: 048
     Dates: start: 2007, end: 200912
  2. FOSAMAX [Suspect]
     Route: 048
     Dates: start: 20040512, end: 200407
  3. TENORETIC [Concomitant]
  4. PLENDIL [Concomitant]
  5. IMURAN [Concomitant]
  6. FUROSEMIDE (FUROSEMIDE) [Concomitant]
  7. PREDNISONE [Concomitant]
  8. ZOCOR [Concomitant]
  9. TICLID [Concomitant]
  10. RELAFEN [Concomitant]
  11. ZETIA (EZETIMIBE) [Concomitant]
  12. SALSALATE (SALSALATE) [Concomitant]
  13. NORVASC [Concomitant]
  14. VARDENAFIL (VARDENAFIL) [Concomitant]
  15. GEMFIBROZIL [Concomitant]
  16. NIACIN [Concomitant]
  17. BIAXIN [Concomitant]

REACTIONS (23)
  - Osteomyelitis [None]
  - Osteonecrosis of jaw [None]
  - Alpha haemolytic streptococcal infection [None]
  - Pain in jaw [None]
  - Post procedural swelling [None]
  - White blood cell count increased [None]
  - Mastication disorder [None]
  - Oesophageal pain [None]
  - Wound dehiscence [None]
  - Purulent discharge [None]
  - Swelling face [None]
  - Dental caries [None]
  - Gingival swelling [None]
  - Tenderness [None]
  - Cellulitis [None]
  - Excessive granulation tissue [None]
  - Toothache [None]
  - Procedural pain [None]
  - Abdominal discomfort [None]
  - Abscess jaw [None]
  - Bone density decreased [None]
  - Speech disorder [None]
  - Deformity [None]
